FAERS Safety Report 7689512-5 (Version None)
Quarter: 2011Q3

REPORT INFORMATION
  Report Type: 
  Country: None (occurrence: None)
  Receive Date: 20110817
  Receipt Date: 20110702
  Transmission Date: 20111222
  Serious: No
  Sender: FDA-Public Use
  Company Number: US-TYCO HEALTHCARE/MALLINCKRODT-T201101340

PATIENT
  Sex: Female
  Weight: 90.703 kg

DRUGS (5)
  1. TIZANIDINE HCL [Concomitant]
     Indication: MUSCLE SPASMS
     Dosage: 4 MG, Q 12 HOURS
     Route: 048
  2. FENTANYL-100 [Suspect]
     Indication: NECK PAIN
  3. FENTANYL-100 [Suspect]
     Indication: BACK PAIN
     Dosage: 100 UG/HR, Q 72 HOURS
     Dates: start: 20110701, end: 20110703
  4. NORCO [Concomitant]
     Dosage: 10/325 MG, 1 TABLET
     Dates: start: 20110702, end: 20110702
  5. NORCO [Concomitant]
     Indication: PAIN
     Dosage: 10/325 MG, TID
     Dates: end: 20110701

REACTIONS (4)
  - BURNING SENSATION [None]
  - PRURITUS GENERALISED [None]
  - THROAT IRRITATION [None]
  - RASH [None]
